FAERS Safety Report 21932656 (Version 1)
Quarter: 2023Q1

REPORT INFORMATION
  Report Type: Spontaneous
  Country: CZ (occurrence: CZ)
  Receive Date: 20230131
  Receipt Date: 20230131
  Transmission Date: 20230418
  Serious: Yes (Other)
  Sender: FDA-Public Use
  Company Number: CZ-ROCHE-3266307

PATIENT
  Age: 27 Year
  Sex: Male

DRUGS (11)
  1. RITUXIMAB [Suspect]
     Active Substance: RITUXIMAB
     Indication: Diffuse large B-cell lymphoma
     Dosage: UNK
     Route: 042
     Dates: start: 20220701
  2. RITUXIMAB [Suspect]
     Active Substance: RITUXIMAB
     Dosage: UNK
     Route: 042
     Dates: start: 202208
  3. RITUXIMAB [Suspect]
     Active Substance: RITUXIMAB
     Dosage: ADMINISTERED 2X
     Route: 042
     Dates: start: 202211, end: 202212
  4. POLATUZUMAB VEDOTIN [Suspect]
     Active Substance: POLATUZUMAB VEDOTIN
     Indication: Diffuse large B-cell lymphoma
     Dosage: ADMINISTERED POLATUZUMAB-RITUXIMAB TWICE
     Route: 065
     Dates: start: 202211, end: 202212
  5. CYCLOPHOSPHAMIDE [Suspect]
     Active Substance: CYCLOPHOSPHAMIDE
     Indication: Diffuse large B-cell lymphoma
     Dosage: UNK
     Route: 065
     Dates: start: 20220701
  6. CYCLOPHOSPHAMIDE [Suspect]
     Active Substance: CYCLOPHOSPHAMIDE
     Dosage: UNK
     Route: 065
     Dates: start: 202208
  7. DOXORUBICIN [Suspect]
     Active Substance: DOXORUBICIN
     Indication: Diffuse large B-cell lymphoma
     Dosage: UNK
     Route: 065
     Dates: start: 20220701
  8. DOXORUBICIN [Suspect]
     Active Substance: DOXORUBICIN
     Dosage: UNK
     Route: 065
     Dates: start: 202208
  9. VINCRISTINE [Suspect]
     Active Substance: VINCRISTINE
     Indication: Diffuse large B-cell lymphoma
     Dosage: UNK
     Route: 065
     Dates: start: 20220701
  10. VINCRISTINE [Suspect]
     Active Substance: VINCRISTINE
     Dosage: UNK
     Route: 065
     Dates: start: 202208
  11. PREDNISONE [Suspect]
     Active Substance: PREDNISONE
     Indication: Diffuse large B-cell lymphoma
     Route: 065
     Dates: start: 20220701

REACTIONS (17)
  - Pneumonia respiratory syncytial viral [Unknown]
  - Thrombocytopenia [Unknown]
  - Haemoptysis [Unknown]
  - Thrombosis in device [Not Recovered/Not Resolved]
  - Sepsis [Unknown]
  - Haematotoxicity [Unknown]
  - Superinfection bacterial [Unknown]
  - Neutropenia [Unknown]
  - Hepatotoxicity [Unknown]
  - Superinfection fungal [Unknown]
  - Coagulopathy [Unknown]
  - Anaemia [Unknown]
  - Hypofibrinogenaemia [Unknown]
  - Parainfluenzae virus infection [Unknown]
  - Liver disorder [Unknown]
  - Mucosal inflammation [Unknown]
  - Off label use [Unknown]
